FAERS Safety Report 15782420 (Version 2)
Quarter: 2019Q1

REPORT INFORMATION
  Report Type: Spontaneous
  Country: JP (occurrence: JP)
  Receive Date: 20190102
  Receipt Date: 20190204
  Transmission Date: 20190417
  Serious: Yes (Hospitalization, Other)
  Sender: FDA-Public Use
  Company Number: JP-GILEAD-2018-0381961

PATIENT
  Age: 73 Year
  Sex: Male

DRUGS (1)
  1. VEMLIDY [Suspect]
     Active Substance: TENOFOVIR ALAFENAMIDE FUMARATE
     Indication: CHRONIC HEPATITIS B
     Dosage: UNK
     Route: 048
     Dates: start: 20181211

REACTIONS (3)
  - Face injury [Not Recovered/Not Resolved]
  - Jaw fracture [Not Recovered/Not Resolved]
  - Neoplasm malignant [Not Recovered/Not Resolved]
